FAERS Safety Report 4274740-1 (Version None)
Quarter: 2004Q1

REPORT INFORMATION
  Report Type: 
  Country: None (occurrence: None)
  Receive Date: 20040115
  Receipt Date: 20031210
  Transmission Date: 20041129
  Serious: Yes (Death, Hospitalization, Other)
  Sender: FDA-Public Use
  Company Number: FR_031203281

PATIENT
  Age: 54 Year
  Sex: Female
  Weight: 75 kg

DRUGS (8)
  1. ZYPREXA [Suspect]
     Indication: PERSECUTORY DELUSION
     Dosage: 20 MG/DAY
     Dates: start: 20030101, end: 20030924
  2. DEPAKOTE [Concomitant]
  3. IXEL (MILNACIPRAN) [Concomitant]
  4. ANAFRANIL [Concomitant]
  5. TERICAN (CYAMEMAZINE) [Concomitant]
  6. MEPRONIZINE [Concomitant]
  7. FURADANTIN [Concomitant]
  8. LOXAPINE SUCCINATE [Concomitant]

REACTIONS (7)
  - DEHYDRATION [None]
  - HEPATOCELLULAR DAMAGE [None]
  - HYPERTHERMIA [None]
  - MANIA [None]
  - RENAL FAILURE [None]
  - RESPIRATORY DISTRESS [None]
  - URINARY TRACT INFECTION [None]
